FAERS Safety Report 24528128 (Version 1)
Quarter: 2024Q4

REPORT INFORMATION
  Report Type: Spontaneous
  Country: US (occurrence: None)
  Receive Date: 20241018
  Receipt Date: 20241018
  Transmission Date: 20250115
  Serious: Yes (Hospitalization)
  Sender: Public
  Company Number: None

PATIENT
  Age: 65 Year
  Sex: Male
  Weight: 81 kg

DRUGS (1)
  1. DOFETILIDE [Suspect]
     Active Substance: DOFETILIDE
     Indication: Atrial fibrillation
     Dosage: FREQUENCY : TWICE A DAY;?
     Route: 048
     Dates: end: 20240304

REACTIONS (4)
  - Cardiac arrest [None]
  - Electrocardiogram QT prolonged [None]
  - Ventricular tachycardia [None]
  - Torsade de pointes [None]

NARRATIVE: CASE EVENT DATE: 20240304
